FAERS Safety Report 22249802 (Version 1)
Quarter: 2023Q2

REPORT INFORMATION
  Report Type: Spontaneous
  Country: DE (occurrence: DE)
  Receive Date: 20230425
  Receipt Date: 20230425
  Transmission Date: 20230721
  Serious: Yes (Hospitalization)
  Sender: FDA-Public Use
  Company Number: None

PATIENT
  Age: 31 Year
  Sex: Male
  Weight: 63 kg

DRUGS (19)
  1. GENTAMICIN [Suspect]
     Active Substance: GENTAMICIN
     Indication: Antibiotic prophylaxis
     Dosage: 250 MG
     Route: 042
     Dates: start: 19931126, end: 19931127
  2. ZOFRAN [Suspect]
     Active Substance: ONDANSETRON HYDROCHLORIDE
     Indication: Product used for unknown indication
     Dosage: UNK
     Route: 048
  3. CALCIUM CARBONATE [Suspect]
     Active Substance: CALCIUM CARBONATE
     Indication: Product used for unknown indication
     Route: 048
  4. FUSAFUNGINE [Suspect]
     Active Substance: FUSAFUNGINE
     Indication: Product used for unknown indication
     Dosage: UNK (RESPIRATORY (INHALATION)
     Route: 055
  5. DARAPRIM [Suspect]
     Active Substance: PYRIMETHAMINE
     Indication: Product used for unknown indication
     Dosage: UNK
     Route: 048
  6. MYAMBUTOL [Suspect]
     Active Substance: ETHAMBUTOL HYDROCHLORIDE
     Indication: Product used for unknown indication
     Dosage: UNK
     Route: 048
  7. LEUCOVORIN [Suspect]
     Active Substance: LEUCOVORIN
     Indication: Product used for unknown indication
     Dosage: UNK
     Route: 048
  8. CIPROFLOXACIN [Suspect]
     Active Substance: CIPROFLOXACIN
     Indication: Product used for unknown indication
     Dosage: UNK (700)
     Route: 048
  9. ACETAMINOPHEN\DEXTROMETHORPHAN HYDROBROMIDE\DOXYLAMINE\EPHEDRINE SULFA [Suspect]
     Active Substance: ACETAMINOPHEN\DEXTROMETHORPHAN HYDROBROMIDE\DOXYLAMINE\EPHEDRINE SULFATE
     Indication: Nasopharyngitis
     Dosage: UNK
     Route: 048
     Dates: start: 19931206, end: 19931208
  10. FLURAZEPAM HYDROCHLORIDE [Suspect]
     Active Substance: FLURAZEPAM HYDROCHLORIDE
     Indication: Sleep disorder
     Dosage: DAYS
     Route: 048
     Dates: start: 19931108, end: 19931128
  11. ISOPROMETHAZINE HYDROCHLORIDE [Suspect]
     Active Substance: ISOPROMETHAZINE HYDROCHLORIDE
     Indication: Product used for unknown indication
     Dosage: UNK
     Route: 042
  12. PYRAZINAMIDE [Suspect]
     Active Substance: PYRAZINAMIDE
     Indication: Product used for unknown indication
     Dosage: UNK
     Route: 048
  13. VITAMIN B6 [Suspect]
     Active Substance: PYRIDOXINE HYDROCHLORIDE
     Indication: Product used for unknown indication
     Dosage: UNK
     Route: 048
  14. ISONIAZID [Suspect]
     Active Substance: ISONIAZID
     Indication: Product used for unknown indication
     Dosage: UNK
     Route: 048
  15. ERYTHROCIN [Suspect]
     Active Substance: ERYTHROMYCIN LACTOBIONATE
     Indication: Product used for unknown indication
     Dosage: UNK
     Route: 042
  16. DIFLUCAN [Suspect]
     Active Substance: FLUCONAZOLE
     Indication: Product used for unknown indication
     Dosage: UNK (100)
     Route: 048
  17. ASPIRIN [Suspect]
     Active Substance: ASPIRIN
     Indication: Product used for unknown indication
     Dosage: UNK
     Route: 048
  18. FLUNITRAZEPAM [Suspect]
     Active Substance: FLUNITRAZEPAM
     Indication: Sleep disorder
     Dosage: 2 MG
     Route: 048
     Dates: start: 19931204, end: 19931204
  19. BISOLVON [Suspect]
     Active Substance: BROMHEXINE HYDROCHLORIDE
     Indication: Product used for unknown indication
     Dosage: UNK
     Route: 048

REACTIONS (6)
  - Stevens-Johnson syndrome [Recovering/Resolving]
  - Respiratory distress [Unknown]
  - Stomatitis [Unknown]
  - Rash [Unknown]
  - Conjunctivitis [Unknown]
  - Toxic epidermal necrolysis [Unknown]

NARRATIVE: CASE EVENT DATE: 19931208
